FAERS Safety Report 17262445 (Version 5)
Quarter: 2020Q4

REPORT INFORMATION
  Report Type: Spontaneous
  Country: US (occurrence: US)
  Receive Date: 20200113
  Receipt Date: 20201021
  Transmission Date: 20210113
  Serious: Yes (Other)
  Sender: FDA-Public Use
  Company Number: US-PFIZER INC-2020012023

PATIENT
  Age: 58 Year
  Sex: Female

DRUGS (2)
  1. LEFLUNOMIDE. [Concomitant]
     Active Substance: LEFLUNOMIDE
     Dosage: UNK
  2. XELJANZ [Suspect]
     Active Substance: TOFACITINIB CITRATE
     Indication: RHEUMATOID ARTHRITIS
     Dosage: 5 MG, 2X/DAY
     Route: 048
     Dates: start: 20190915, end: 202006

REACTIONS (10)
  - Pain [Unknown]
  - Product dose omission in error [Unknown]
  - Upper-airway cough syndrome [Recovering/Resolving]
  - Vomiting [Unknown]
  - Weight decreased [Unknown]
  - Nasopharyngitis [Recovering/Resolving]
  - Malaise [Unknown]
  - Rash macular [Unknown]
  - Herpes zoster [Unknown]
  - Hyperactive pharyngeal reflex [Unknown]

NARRATIVE: CASE EVENT DATE: 20191215
